FAERS Safety Report 11485818 (Version 1)
Quarter: 2015Q3

REPORT INFORMATION
  Report Type: Report from Study
  Country: BR (occurrence: BR)
  Receive Date: 20150910
  Receipt Date: 20150910
  Transmission Date: 20151125
  Serious: Yes (Other)
  Sender: FDA-Public Use
  Company Number: PHHY2015BR108280

PATIENT
  Sex: Female
  Weight: 73 kg

DRUGS (1)
  1. DIOVAN HCT [Suspect]
     Active Substance: HYDROCHLOROTHIAZIDE\VALSARTAN
     Indication: CARDIAC DISORDER
     Dosage: 1 DF, HALF IN THE MORNING/HALF AT NIGHT
     Route: 065

REACTIONS (6)
  - Mitral valve incompetence [Unknown]
  - Exercise tolerance decreased [Unknown]
  - Blood pressure abnormal [Unknown]
  - Fatigue [Unknown]
  - Dyspnoea [Unknown]
  - Wrong technique in product usage process [Unknown]
